FAERS Safety Report 6568648-6 (Version None)
Quarter: 2010Q1

REPORT INFORMATION
  Report Type: 
  Country: None (occurrence: None)
  Receive Date: 20100203
  Receipt Date: 20100120
  Transmission Date: 20100710
  Serious: Yes (Other)
  Sender: FDA-Public Use
  Company Number: PHHY2010NL02877

PATIENT
  Sex: Male

DRUGS (2)
  1. DIOVAN HCT [Suspect]
     Dosage: 160/12.5 MG
  2. DIOVAN HCT [Suspect]
     Dosage: 320/12.5 MG

REACTIONS (3)
  - BLOOD PRESSURE SYSTOLIC INCREASED [None]
  - JOINT SWELLING [None]
  - OEDEMA PERIPHERAL [None]
